FAERS Safety Report 14830994 (Version 3)
Quarter: 2018Q3

REPORT INFORMATION
  Report Type: Spontaneous
  Country: NO (occurrence: NO)
  Receive Date: 20180430
  Receipt Date: 20180712
  Transmission Date: 20181010
  Serious: Yes (Death, Hospitalization)
  Sender: FDA-Public Use
  Company Number: PHHY2018NO074905

PATIENT
  Age: 69 Year
  Sex: Male
  Weight: 69 kg

DRUGS (1)
  1. ZOMETA [Suspect]
     Active Substance: ZOLEDRONIC ACID
     Indication: METASTASES TO BONE
     Dosage: 4 MG/5ML
     Route: 065
     Dates: start: 20170725, end: 20170725

REACTIONS (10)
  - Arthralgia [Not Recovered/Not Resolved]
  - Renal impairment [Not Recovered/Not Resolved]
  - Malaise [Unknown]
  - Flank pain [Unknown]
  - Infection [Fatal]
  - Myalgia [Unknown]
  - Pneumonia [Fatal]
  - Neoplasm malignant [Fatal]
  - Pyrexia [Unknown]
  - C-reactive protein increased [Not Recovered/Not Resolved]

NARRATIVE: CASE EVENT DATE: 20170730
